FAERS Safety Report 14452601 (Version 8)
Quarter: 2018Q3

REPORT INFORMATION
  Report Type: Report from Study
  Country: FR (occurrence: FR)
  Receive Date: 20180129
  Receipt Date: 20180803
  Transmission Date: 20181010
  Serious: Yes (Hospitalization)
  Sender: FDA-Public Use
  Company Number: FR-MYLANLABS-2018M1006224

PATIENT
  Age: 6 Year
  Sex: Male

DRUGS (12)
  1. MITOXANTRONE [Interacting]
     Active Substance: MITOXANTRONE HYDROCHLORIDE
     Indication: ACUTE LYMPHOCYTIC LEUKAEMIA
     Dosage: 12 MG, UNK
     Route: 042
     Dates: start: 20171109, end: 20171110
  2. HYDROCORTISONE. [Interacting]
     Active Substance: HYDROCORTISONE
     Dosage: UNK
  3. ARACYTINE [Interacting]
     Active Substance: CYTARABINE
     Indication: ACUTE LYMPHOCYTIC LEUKAEMIA
     Dosage: 6100 MG, UNK
     Route: 042
     Dates: start: 20171107, end: 20171108
  4. BACTRIM [Concomitant]
     Active Substance: SULFAMETHOXAZOLE\TRIMETHOPRIM
     Indication: ANTIBIOTIC THERAPY
     Dosage: UNK
     Route: 065
  5. METHOTREXATE. [Interacting]
     Active Substance: METHOTREXATE
     Indication: ACUTE LYMPHOCYTIC LEUKAEMIA
     Dosage: 15 MG, UNK
     Route: 037
     Dates: start: 20171111, end: 20171111
  6. DEXAMETHASONE. [Suspect]
     Active Substance: DEXAMETHASONE
     Indication: ACUTE LYMPHOCYTIC LEUKAEMIA
     Dosage: UNK
  7. PEGASPARGASE [Interacting]
     Active Substance: PEGASPARGASE
     Indication: ACUTE LYMPHOCYTIC LEUKAEMIA
     Dosage: 3750 IU, UNK
     Route: 042
     Dates: start: 20171112, end: 20171112
  8. ARACYTINE [Interacting]
     Active Substance: CYTARABINE
     Dosage: 30 MG, UNK
     Route: 037
     Dates: start: 20171111, end: 20171111
  9. CYTARABINE. [Interacting]
     Active Substance: CYTARABINE
     Indication: ACUTE LYMPHOCYTIC LEUKAEMIA
     Dosage: 6100 MG, UNK
     Route: 042
     Dates: start: 20171107, end: 20171108
  10. HYDROCORTISONE. [Interacting]
     Active Substance: HYDROCORTISONE
     Indication: ACUTE LYMPHOCYTIC LEUKAEMIA
     Dosage: 15 MG, QD
     Route: 037
     Dates: start: 20171111, end: 20171111
  11. ETOPOSIDE. [Suspect]
     Active Substance: ETOPOSIDE
     Indication: ACUTE LYMPHOCYTIC LEUKAEMIA
     Dosage: 230 MG, UNK
     Route: 042
     Dates: start: 20171109, end: 20171110
  12. DEXAMETHASONE. [Interacting]
     Active Substance: DEXAMETHASONE
     Indication: ACUTE LYMPHOCYTIC LEUKAEMIA
     Dosage: 30 MG, UNK
     Route: 048
     Dates: start: 20171107, end: 20171112

REACTIONS (2)
  - Potentiating drug interaction [Recovered/Resolved]
  - Jugular vein thrombosis [Recovered/Resolved]

NARRATIVE: CASE EVENT DATE: 20171130
